FAERS Safety Report 5835733-3 (Version None)
Quarter: 2008Q3

REPORT INFORMATION
  Report Type: 
  Country: None (occurrence: None)
  Receive Date: 20080806
  Receipt Date: 20080725
  Transmission Date: 20090109
  Serious: Yes (Other)
  Sender: FDA-Public Use
  Company Number: FR-ROCHE-578886

PATIENT
  Sex: Female

DRUGS (2)
  1. RIVOTRIL [Suspect]
     Indication: ANALGESIA
     Dosage: 10 DROPS IN THE EVENING
     Route: 048
  2. XELODA [Suspect]
     Indication: BREAST NEOPLASM
     Route: 065

REACTIONS (1)
  - EYELID PTOSIS [None]
